FAERS Safety Report 4576045-8 (Version None)
Quarter: 2005Q1

REPORT INFORMATION
  Report Type: 
  Country: None (occurrence: None)
  Receive Date: 20050204
  Receipt Date: 20050112
  Transmission Date: 20050727
  Serious: Yes (Life-Threatening, Other)
  Sender: FDA-Public Use
  Company Number: FR-2005-000431

PATIENT
  Age: 64 Year
  Sex: Female

DRUGS (5)
  1. FLUDARA [Suspect]
     Indication: CHRONIC LYMPHOCYTIC LEUKAEMIA
     Dosage: 1 DF, INTRAVENOUS
     Route: 042
     Dates: start: 20040828, end: 20040901
  2. ENDOXAN (CYCLOPHAMIDE) [Suspect]
     Indication: CHRONIC LYMPHOCYTIC LEUKAEMIA
     Dosage: 2.7 G, 1 DOSE, INTRAVENOUS
     Route: 042
     Dates: start: 20040828, end: 20040828
  3. SANDIMMUNE [Suspect]
     Indication: CHRONIC LYMPHOCYTIC LEUKAEMIA
     Dosage: 340 MG 1XDAY, INTRAVENOUS
     Route: 042
     Dates: start: 20040831
  4. CELLCEPT [Suspect]
     Indication: CHRONIC LYMPHOCYTIC LEUKAEMIA
     Dosage: 1.5 G 1 X/DAY, INTRAVENOUS
     Route: 042
     Dates: start: 20040831, end: 20041003
  5. MESNA [Concomitant]

REACTIONS (15)
  - APLASIA [None]
  - ASPERGILLOSIS [None]
  - CYTOMEGALOVIRUS ANTIGEN POSITIVE [None]
  - ENCEPHALITIS [None]
  - EXTRAPYRAMIDAL DISORDER [None]
  - FUNGUS SEROLOGY TEST POSITIVE [None]
  - GENERALISED OEDEMA [None]
  - GRAFT COMPLICATION [None]
  - GRAFT VERSUS HOST DISEASE [None]
  - HERPES ZOSTER [None]
  - MALIGNANT NEOPLASM PROGRESSION [None]
  - RENAL FAILURE CHRONIC [None]
  - THERAPY NON-RESPONDER [None]
  - TOXOPLASMOSIS [None]
  - URINARY TRACT INFECTION [None]
